FAERS Safety Report 14694556 (Version 1)
Quarter: 2018Q1

REPORT INFORMATION
  Report Type: Spontaneous
  Country: US (occurrence: US)
  Receive Date: 20180329
  Receipt Date: 20180329
  Transmission Date: 20180509
  Serious: No
  Sender: FDA-Public Use
  Company Number: US-DRREDDYS-USA/USA/18/0095899

PATIENT
  Age: 64 Year
  Sex: Female
  Weight: 60.78 kg

DRUGS (3)
  1. METFORMIN [Concomitant]
     Active Substance: METFORMIN HYDROCHLORIDE
     Indication: PRODUCT USED FOR UNKNOWN INDICATION
     Route: 065
  2. SUMATRIPTAN INJECTION USP, 6 MG/0.5 ML [Suspect]
     Active Substance: SUMATRIPTAN
     Indication: PRODUCT USED FOR UNKNOWN INDICATION
     Route: 065
  3. HYDROCODONE [Concomitant]
     Active Substance: HYDROCODONE
     Indication: MIGRAINE
     Route: 065

REACTIONS (6)
  - Injection site injury [Unknown]
  - Injection site pain [Unknown]
  - Injection site haemorrhage [Unknown]
  - Product physical issue [Unknown]
  - Wrong technique in product usage process [Unknown]
  - Application site bruise [Unknown]
